FAERS Safety Report 4628800-3 (Version None)
Quarter: 2005Q1

REPORT INFORMATION
  Report Type: 
  Country: None (occurrence: None)
  Receive Date: 20050107
  Receipt Date: 20040923
  Transmission Date: 20050727
  Serious: No
  Sender: FDA-Public Use
  Company Number: 234827K04USA

PATIENT
  Age: 44 Year
  Sex: Male

DRUGS (1)
  1. REBIF [Suspect]
     Indication: MULTIPLE SCLEROSIS
     Dosage: 44 MCG
     Dates: start: 20040510

REACTIONS (5)
  - BURNING SENSATION [None]
  - HAIR COLOUR CHANGES [None]
  - INJECTION SITE ERYTHEMA [None]
  - INJECTION SITE REACTION [None]
  - PAIN [None]
